FAERS Safety Report 7318387-9 (Version None)
Quarter: 2011Q1

REPORT INFORMATION
  Report Type: 
  Country: None (occurrence: None)
  Receive Date: 20110218
  Receipt Date: 20110218
  Transmission Date: 20110831
  Serious: No
  Sender: FDA-Public Use
  Company Number: None

PATIENT
  Sex: Female
  Weight: 114.8 kg

DRUGS (2)
  1. TEMOZOLOMIDE [Suspect]
     Dosage: 4775 MG
     Dates: end: 20110213
  2. BEVACIZUMAB (RHUMAB VEGF) [Suspect]
     Dosage: 515 MG
     Dates: end: 20110128

REACTIONS (1)
  - PLATELET COUNT DECREASED [None]
